FAERS Safety Report 5811876-5 (Version None)
Quarter: 2008Q3

REPORT INFORMATION
  Report Type: 
  Country: None (occurrence: None)
  Receive Date: 20080711
  Receipt Date: 20080704
  Transmission Date: 20090109
  Serious: Yes (Death)
  Sender: FDA-Public Use
  Company Number: WAES 0806DNK00004

PATIENT

DRUGS (1)
  1. COZAAR [Suspect]
     Dosage: 100 MG/DAILY
     Route: 048

REACTIONS (1)
  - DEATH [None]
